FAERS Safety Report 4629759-5 (Version None)
Quarter: 2005Q2

REPORT INFORMATION
  Report Type: 
  Country: None (occurrence: None)
  Receive Date: 20050407
  Receipt Date: 20050331
  Transmission Date: 20051028
  Serious: Yes (Hospitalization)
  Sender: FDA-Public Use
  Company Number: CH-2004-029538

PATIENT
  Age: 57 Year
  Sex: Female
  Weight: 82 kg

DRUGS (1)
  1. BETAFERON (INTERFERON BETA - 1B)  INJECTION, 250 MICROGRAMS [Suspect]
     Indication: MULTIPLE SCLEROSIS
     Dosage: 8 MIU, EVERY 2D, SUBCUTANEOUS
     Route: 058

REACTIONS (2)
  - INJECTION SITE ABSCESS [None]
  - POST PROCEDURAL HAEMORRHAGE [None]
